FAERS Safety Report 12929310 (Version 1)
Quarter: 2016Q4

REPORT INFORMATION
  Report Type: Spontaneous
  Country: CN (occurrence: CN)
  Receive Date: 20161110
  Receipt Date: 20161110
  Transmission Date: 20170207
  Serious: Yes (Other)
  Sender: FDA-Public Use
  Company Number: CN-PFIZER INC-2016518177

PATIENT
  Age: 49 Year
  Sex: Male
  Weight: 56 kg

DRUGS (4)
  1. SODIUM CHLORIDE. [Concomitant]
     Active Substance: SODIUM CHLORIDE
     Indication: VEHICLE SOLUTION USE
     Dosage: 250 ML, 1X/DAY
     Route: 041
     Dates: start: 20160918, end: 20160925
  2. LIPITOR [Suspect]
     Active Substance: ATORVASTATIN CALCIUM
     Indication: HYPERLIPIDAEMIA
     Dosage: 20 MG, 1X/DAY
     Route: 048
     Dates: start: 20160918, end: 20160924
  3. CINEPAZIDE MALEATE [Suspect]
     Active Substance: CINEPAZIDE MALEATE
     Indication: CEREBRAL INFARCTION
     Dosage: 320 MG, 1X/DAY
     Route: 041
     Dates: start: 20160918, end: 20160925
  4. IRBESARTAN HYDROCHLOROTHIAZIDE [Concomitant]
     Active Substance: HYDROCHLOROTHIAZIDE\IRBESARTAN
     Indication: HYPERTENSION
     Dosage: 150 MG, 1X/DAY
     Route: 048
     Dates: start: 20160919, end: 20160925

REACTIONS (4)
  - Decreased appetite [Recovering/Resolving]
  - Mental status changes [Recovering/Resolving]
  - Ocular icterus [Recovering/Resolving]
  - Hepatic function abnormal [Recovering/Resolving]

NARRATIVE: CASE EVENT DATE: 20160925
